FAERS Safety Report 8634542 (Version 4)
Quarter: 2012Q4

REPORT INFORMATION
  Report Type: 
  Country: DE (occurrence: DE)
  Receive Date: 20120626
  Receipt Date: 20120920
  Transmission Date: 20130627
  Serious: Yes (Other)
  Sender: FDA-Public Use
  Company Number: PHHY2012DE053636

PATIENT
  Sex: Female
  Weight: 59 kg

DRUGS (6)
  1. ACLASTA [Suspect]
     Indication: OSTEOPOROSIS
     Dosage: 5 mg, once yearly
     Route: 042
     Dates: start: 20090303
  2. ACLASTA [Suspect]
     Dosage: 5 mg once yearly
     Route: 042
     Dates: start: 20100302
  3. ACLASTA [Suspect]
     Dosage: 5 mg once yearly
     Route: 042
     Dates: start: 20110324
  4. ACLASTA [Suspect]
     Dosage: 5 mg once yearly
     Route: 042
     Dates: start: 20120525
  5. EUTHYROX [Concomitant]
     Indication: HYPOTHYROIDISM
     Dosage: 75 ug,
     Route: 048
  6. CALCIMAGON-D3 [Concomitant]
     Dosage: 1 DF,
     Route: 048

REACTIONS (13)
  - Bone loss [Unknown]
  - Tooth loss [Unknown]
  - Atrophy [Unknown]
  - Tooth disorder [Unknown]
  - Bone disorder [Unknown]
  - Jaw disorder [Unknown]
  - Pain in jaw [Unknown]
  - Arthralgia [Unknown]
  - Pain [Unknown]
  - Bone pain [Unknown]
  - Pain in extremity [Unknown]
  - Musculoskeletal pain [Unknown]
  - Chills [Unknown]
